FAERS Safety Report 15524155 (Version 5)
Quarter: 2023Q1

REPORT INFORMATION
  Report Type: Spontaneous
  Country: US (occurrence: None)
  Receive Date: 20181019
  Receipt Date: 20230117
  Transmission Date: 20230417
  Serious: Yes (Other)
  Sender: FDA-Public Use
  Company Number: 2018SF35245

PATIENT
  Age: 29285 Day
  Sex: Male
  Weight: 88.5 kg

DRUGS (71)
  1. NEXIUM [Suspect]
     Active Substance: ESOMEPRAZOLE MAGNESIUM
     Indication: Gastrooesophageal reflux disease
     Route: 048
     Dates: start: 20031217, end: 20120103
  2. NEXIUM [Suspect]
     Active Substance: ESOMEPRAZOLE MAGNESIUM
     Indication: Gastrooesophageal reflux disease
     Dosage: 40 MG
     Route: 048
     Dates: start: 2011
  3. PRILOSEC [Suspect]
     Active Substance: OMEPRAZOLE MAGNESIUM
     Indication: Gastrooesophageal reflux disease
     Dosage: 40 MG
     Route: 048
     Dates: start: 2004
  4. PRILOSEC [Suspect]
     Active Substance: OMEPRAZOLE MAGNESIUM
     Indication: Gastrooesophageal reflux disease
     Dosage: GENERIC
     Route: 065
  5. PRILOSEC [Suspect]
     Active Substance: OMEPRAZOLE MAGNESIUM
     Indication: Gastrooesophageal reflux disease
     Dosage: GENERIC
     Route: 065
     Dates: start: 20080325
  6. PREVACID [Suspect]
     Active Substance: LANSOPRAZOLE
     Indication: Gastrooesophageal reflux disease
     Route: 065
     Dates: start: 20031217, end: 20120103
  7. PROTONIX [Suspect]
     Active Substance: PANTOPRAZOLE SODIUM
     Indication: Gastrooesophageal reflux disease
     Dosage: 40 MG
     Route: 065
     Dates: start: 20031217, end: 20120103
  8. PROTONIX [Suspect]
     Active Substance: PANTOPRAZOLE SODIUM
     Indication: Gastrooesophageal reflux disease
     Dosage: GENERIC, 40 MG
     Route: 065
  9. PROTONIX [Suspect]
     Active Substance: PANTOPRAZOLE SODIUM
     Indication: Gastrooesophageal reflux disease
     Dosage: GENERIC, 40 MG
     Route: 065
  10. RABEPRAZOLE [Suspect]
     Active Substance: RABEPRAZOLE
     Indication: Gastrooesophageal reflux disease
     Route: 065
     Dates: start: 20021216, end: 20031217
  11. LISINOPRIL [Concomitant]
     Active Substance: LISINOPRIL
     Indication: Blood pressure measurement
  12. FUROSEMIDE [Concomitant]
     Active Substance: FUROSEMIDE
     Indication: Fluid retention
  13. CRESTOR [Concomitant]
     Active Substance: ROSUVASTATIN CALCIUM
     Indication: Blood cholesterol
  14. LIPITOR [Concomitant]
     Active Substance: ATORVASTATIN CALCIUM
     Indication: Blood cholesterol
  15. PLAVIX [Concomitant]
     Active Substance: CLOPIDOGREL BISULFATE
  16. LOSARTAN [Concomitant]
     Active Substance: LOSARTAN
     Indication: Blood pressure measurement
  17. PRANDIN [Concomitant]
     Active Substance: REPAGLINIDE
  18. ALTACE [Concomitant]
     Active Substance: RAMIPRIL
  19. CLARITIN [Concomitant]
     Active Substance: LORATADINE
  20. AUGMENTIN [Concomitant]
     Active Substance: AMOXICILLIN\CLAVULANATE POTASSIUM
  21. NAPROXEN [Concomitant]
     Active Substance: NAPROXEN
  22. GLYBURIDE [Concomitant]
     Active Substance: GLYBURIDE
  23. SYNTHROID [Concomitant]
     Active Substance: LEVOTHYROXINE SODIUM
     Route: 048
  24. ATENOLOL [Concomitant]
     Active Substance: ATENOLOL
  25. BYSTOLIC [Concomitant]
     Active Substance: NEBIVOLOL HYDROCHLORIDE
  26. CALCITRIOL [Concomitant]
     Active Substance: CALCITRIOL
  27. ZETIA [Concomitant]
     Active Substance: EZETIMIBE
  28. NOVOLOG [Concomitant]
     Active Substance: INSULIN ASPART
  29. FLUOCINONIDE [Concomitant]
     Active Substance: FLUOCINONIDE
  30. RELION [Concomitant]
  31. AMLODIPINE BESYLATE [Concomitant]
     Active Substance: AMLODIPINE BESYLATE
  32. COLESTIPOL [Concomitant]
     Active Substance: COLESTIPOL
  33. TRAMADOL [Concomitant]
     Active Substance: TRAMADOL
  34. NIACIN [Concomitant]
     Active Substance: NIACIN
  35. ETODOLAC [Concomitant]
     Active Substance: ETODOLAC
  36. TERAZOSIN [Concomitant]
     Active Substance: TERAZOSIN HYDROCHLORIDE
  37. SULFAMETHOXAZOLE [Concomitant]
     Active Substance: SULFAMETHOXAZOLE
  38. CARBAMAZEPINE [Concomitant]
     Active Substance: CARBAMAZEPINE
  39. ASCORBIC ACID [Concomitant]
     Active Substance: ASCORBIC ACID
  40. NITROSTAT [Concomitant]
     Active Substance: NITROGLYCERIN
  41. ASPIRIN [Concomitant]
     Active Substance: ASPIRIN
  42. ERGOCALCIFEROL [Concomitant]
     Active Substance: ERGOCALCIFEROL
  43. OXYCODONE AND ACETAMINOPHEN [Concomitant]
     Active Substance: ACETAMINOPHEN\OXYCODONE HYDROCHLORIDE
  44. IRON [Concomitant]
     Active Substance: IRON
  45. VITAMIN D3 [Concomitant]
     Active Substance: CHOLECALCIFEROL
     Dates: start: 20220825
  46. ALOGLIPTIN [Concomitant]
     Active Substance: ALOGLIPTIN
     Dates: start: 20220825
  47. POLYETHYLENE GLYCOL [Concomitant]
     Active Substance: POLYETHYLENE GLYCOL
     Dates: start: 20220825
  48. IMDUR [Concomitant]
     Active Substance: ISOSORBIDE MONONITRATE
     Dates: start: 20220825
  49. ELIQUIS [Concomitant]
     Active Substance: APIXABAN
     Dates: start: 20220825
  50. DILTIAZEM [Concomitant]
     Active Substance: DILTIAZEM
     Dates: start: 20220825
  51. FLOMAX [Concomitant]
     Active Substance: TAMSULOSIN HYDROCHLORIDE
     Dates: start: 20220825
  52. MELATONIN [Concomitant]
     Active Substance: MELATONIN
     Dates: start: 20220825
  53. ZITHROMAX [Concomitant]
     Active Substance: AZITHROMYCIN DIHYDRATE
     Dates: start: 20220825
  54. IMODIUM [Concomitant]
     Active Substance: LOPERAMIDE HYDROCHLORIDE
  55. HYDROMORPHONE [Concomitant]
     Active Substance: HYDROMORPHONE
  56. ROBAXIN [Concomitant]
     Active Substance: METHOCARBAMOL
  57. ELECTROLYTES NOS [Concomitant]
     Active Substance: ELECTROLYTES NOS
  58. RESTORIL [Concomitant]
     Active Substance: TEMAZEPAM
  59. LANTUS [Concomitant]
     Active Substance: INSULIN GLARGINE
  60. VITAMINS [Concomitant]
     Active Substance: VITAMINS
  61. SENNA [Concomitant]
     Active Substance: SENNA LEAF\SENNOSIDES\SENNOSIDES A AND B
  62. REGLAN [Concomitant]
     Active Substance: METOCLOPRAMIDE HYDROCHLORIDE
  63. NASTURTIUM OFFICINALE/SODIUM SULFATE/MYOSOTIS ARVENSIS/GERANIUM ROBERT [Concomitant]
  64. ALDIOXA/CETYLPYRIDINIUM/DIMETICONE [Concomitant]
  65. HEPARIN [Concomitant]
     Active Substance: HEPARIN SODIUM
  66. CYCLOBENZAPRINE [Concomitant]
     Active Substance: CYCLOBENZAPRINE
  67. LIDOCAINE [Concomitant]
     Active Substance: LIDOCAINE
  68. DULOXETINE HYDROCHLORIDE [Concomitant]
     Active Substance: DULOXETINE HYDROCHLORIDE
  69. VENLAFAXINE [Concomitant]
     Active Substance: VENLAFAXINE HYDROCHLORIDE
  70. ACETAMINOPHEN [Concomitant]
     Active Substance: ACETAMINOPHEN
  71. PSYLLIUM [Concomitant]
     Active Substance: PLANTAGO SEED

REACTIONS (9)
  - Chronic kidney disease [Unknown]
  - Acute kidney injury [Unknown]
  - Renal disorder [Not Recovered/Not Resolved]
  - Renal artery stent placement [Not Recovered/Not Resolved]
  - Renal failure [Unknown]
  - Chronic kidney disease-mineral and bone disorder [Unknown]
  - Nephrogenic anaemia [Unknown]
  - Chronic kidney disease-mineral and bone disorder [Unknown]
  - Hyperparathyroidism secondary [Unknown]

NARRATIVE: CASE EVENT DATE: 20060831
